FAERS Safety Report 8763604 (Version 1)
Quarter: 2012Q4

REPORT INFORMATION
  Report Type: 
  Country: BR (occurrence: BR)
  Receive Date: 20120831
  Receipt Date: 20120831
  Transmission Date: 20130627
  Serious: Yes (Other)
  Sender: FDA-Public Use
  Company Number: BR-AMGEN-BRASP2012054570

PATIENT
  Age: 68 Year
  Sex: Female
  Weight: 83 kg

DRUGS (12)
  1. ENBREL [Suspect]
     Indication: PSORIASIS
     Dosage: 25 mg, weekly
     Route: 058
     Dates: start: 2005
  2. ENBREL [Suspect]
     Dosage: 25 mg, 2x/week
     Dates: start: 20090128
  3. ATENOLOL [Concomitant]
     Indication: BLOOD PRESSURE ABNORMAL
     Dosage: 100 mg, UNK
  4. DIOVAN HCT [Concomitant]
     Indication: BLOOD PRESSURE ABNORMAL
     Dosage: UNK
  5. LORAX                              /00273201/ [Concomitant]
     Indication: DEPRESSION
     Dosage: 1 mg, UNK
  6. DILTIAZEM [Concomitant]
     Dosage: 30 mg, 1x/day
  7. DIAZEPAM [Concomitant]
     Dosage: 10 mg, 1x/day
  8. SPIROLACTON [Concomitant]
     Dosage: 25 mg, 1x/day
  9. ENALAPRIL [Concomitant]
     Indication: HYPERTENSION
     Dosage: 20 mg, 2x/day
  10. MANTIDAN [Concomitant]
     Indication: HEAD DISCOMFORT
     Dosage: 100 mg, 1x/day
  11. EPEZ [Concomitant]
     Dosage: 5 mg, 1x/day
  12. CLOPIDOGREL [Concomitant]
     Dosage: 75 mg, 1x/day

REACTIONS (5)
  - Diabetes mellitus [Unknown]
  - Cataract [Unknown]
  - Skin papilloma [Unknown]
  - Rash macular [Unknown]
  - Drug ineffective [Recovering/Resolving]
